FAERS Safety Report 14479134 (Version 2)
Quarter: 2018Q1

REPORT INFORMATION
  Report Type: Spontaneous
  Country: US (occurrence: US)
  Receive Date: 20180202
  Receipt Date: 20180318
  Transmission Date: 20180509
  Serious: No
  Sender: FDA-Public Use
  Company Number: US-ASTRAZENECA-2018SE13019

PATIENT
  Age: 1060 Month
  Sex: Female
  Weight: 69.9 kg

DRUGS (4)
  1. TUDORZA PRESSAIR [Suspect]
     Active Substance: ACLIDINIUM BROMIDE
     Indication: LUNG DISORDER
     Dosage: 400 MCG ONE PUFF TWICE PER DAY
     Route: 055
     Dates: start: 201712
  2. TUDORZA PRESSAIR [Suspect]
     Active Substance: ACLIDINIUM BROMIDE
     Indication: BRONCHIAL DISORDER
     Dosage: 400 MCG ONE PUFF TWICE PER DAY
     Route: 055
     Dates: start: 201712
  3. TUDORZA PRESSAIR [Suspect]
     Active Substance: ACLIDINIUM BROMIDE
     Indication: ASTHMA
     Dosage: 400 MCG ONE PUFF TWICE PER DAY
     Route: 055
     Dates: start: 201712
  4. TUDORZA PRESSAIR [Suspect]
     Active Substance: ACLIDINIUM BROMIDE
     Indication: LUNG DISORDER
     Dosage: 400 MCG ONE PUFF TWICE PER DAY
     Route: 055
     Dates: start: 201712

REACTIONS (5)
  - Device issue [Unknown]
  - Product use in unapproved indication [Unknown]
  - Off label use [Unknown]
  - Circumstance or information capable of leading to medication error [Unknown]
  - Productive cough [Unknown]

NARRATIVE: CASE EVENT DATE: 201712
